FAERS Safety Report 20193062 (Version 3)
Quarter: 2022Q1

REPORT INFORMATION
  Report Type: Other
  Country: ZA (occurrence: None)
  Receive Date: 20211216
  Receipt Date: 20220228
  Transmission Date: 20220423
  Serious: Yes (Other)
  Sender: FDA-Public Use
  Company Number: ZA-ROCHE-2974410

PATIENT
  Sex: Female
  Weight: 62 kg

DRUGS (3)
  1. OCREVUS [Suspect]
     Active Substance: OCRELIZUMAB
     Indication: Product used for unknown indication
     Dosage: THEN 300MG EVERY 4 MONTHS
     Route: 041
  2. COPAXONE [Concomitant]
     Active Substance: GLATIRAMER ACETATE
     Dates: start: 2019
  3. AUBAGIO [Concomitant]
     Active Substance: TERIFLUNOMIDE
     Dates: start: 2019

REACTIONS (3)
  - Pneumonia [Unknown]
  - Off label use [Unknown]
  - Maternal exposure during pregnancy [Unknown]
